FAERS Safety Report 5263809-0 (Version None)
Quarter: 2007Q1

REPORT INFORMATION
  Report Type: 
  Country: None (occurrence: None)
  Receive Date: 20070313
  Receipt Date: 20070308
  Transmission Date: 20070707
  Serious: Yes (Other)
  Sender: FDA-Public Use
  Company Number: US-GLAXOSMITHKLINE-A0642441A

PATIENT
  Sex: Female

DRUGS (3)
  1. COREG [Suspect]
     Indication: DRUG USE FOR UNKNOWN INDICATION
     Dosage: 12.5MG TWICE PER DAY
     Route: 048
     Dates: start: 20050927
  2. VERAPAMIL [Suspect]
  3. HYDROCHLOROTHIAZIDE [Suspect]

REACTIONS (2)
  - DRUG INTERACTION [None]
  - RENAL FAILURE [None]
